FAERS Safety Report 11245206 (Version 5)
Quarter: 2019Q1

REPORT INFORMATION
  Report Type: Spontaneous
  Country: US (occurrence: US)
  Receive Date: 20150707
  Receipt Date: 20190321
  Transmission Date: 20190417
  Serious: Yes (Hospitalization, Other)
  Sender: FDA-Public Use
  Company Number: US-DSJP-DSU-2015-120854

PATIENT

DRUGS (6)
  1. BENICAR [Suspect]
     Active Substance: OLMESARTAN MEDOXOMIL
     Indication: HYPERTENSION
     Dosage: UNK
     Dates: start: 20070301
  2. BENICAR [Suspect]
     Active Substance: OLMESARTAN MEDOXOMIL
     Dosage: 20 MG, QD
     Route: 048
  3. BENICAR [Suspect]
     Active Substance: OLMESARTAN MEDOXOMIL
     Dosage: 20 MG, BID
     Route: 048
  4. CARDIZEM [Concomitant]
     Active Substance: DILTIAZEM HYDROCHLORIDE
     Indication: PRODUCT USED FOR UNKNOWN INDICATION
     Dosage: 300 MG, QD
  5. BENICAR HCT [Suspect]
     Active Substance: HYDROCHLOROTHIAZIDE\OLMESARTAN MEDOXOMIL
     Indication: PRODUCT USED FOR UNKNOWN INDICATION
     Dosage: UNK
  6. BENICAR [Suspect]
     Active Substance: OLMESARTAN MEDOXOMIL
     Dosage: 40 MG, QD
     Route: 048
     Dates: start: 2006, end: 2014

REACTIONS (16)
  - Gastrointestinal haemorrhage [Unknown]
  - Helicobacter infection [Not Recovered/Not Resolved]
  - Anxiety [Unknown]
  - Large intestine polyp [Recovered/Resolved]
  - Hiatus hernia [Unknown]
  - Rectal polyp [Unknown]
  - Constipation [Not Recovered/Not Resolved]
  - Hepatic cyst [Unknown]
  - Sprue-like enteropathy [Recovering/Resolving]
  - Renal failure [Unknown]
  - Gastrooesophageal reflux disease [Not Recovered/Not Resolved]
  - Depression [Unknown]
  - Cholecystitis [Recovered/Resolved]
  - Haemorrhoids [Unknown]
  - Acquired oesophageal web [Unknown]
  - Dizziness [Unknown]

NARRATIVE: CASE EVENT DATE: 200707
